FAERS Safety Report 23753409 (Version 1)
Quarter: 2024Q2

REPORT INFORMATION
  Report Type: Spontaneous
  Country: US (occurrence: None)
  Receive Date: 20240417
  Receipt Date: 20240417
  Transmission Date: 20240715
  Serious: Yes (Life-Threatening, Hospitalization)
  Sender: FDA-Public Use
  Company Number: None

PATIENT
  Age: 28 Year
  Sex: Male
  Weight: 65.77 kg

DRUGS (3)
  1. CHLORPROMAZINE [Suspect]
     Active Substance: CHLORPROMAZINE
     Indication: Product use issue
     Dosage: OTHER QUANTITY : PILLS;?FREQUENCY : 3 TIMES A DAY;?
     Dates: start: 20231210
  2. SEROQUEL [Suspect]
     Active Substance: QUETIAPINE FUMARATE
  3. BENZTROPINE [Suspect]
     Active Substance: BENZTROPINE

REACTIONS (8)
  - Prescribed overdose [None]
  - Haematochezia [None]
  - Hepatic pain [None]
  - Constipation [None]
  - Diarrhoea [None]
  - Legal problem [None]
  - Victim of crime [None]
  - Quality of life decreased [None]

NARRATIVE: CASE EVENT DATE: 20240201
